FAERS Safety Report 4752532-4 (Version None)
Quarter: 2005Q3

REPORT INFORMATION
  Report Type: 
  Country: None (occurrence: None)
  Receive Date: 20050823
  Receipt Date: 20050816
  Transmission Date: 20060218
  Serious: Yes (Other)
  Sender: FDA-Public Use
  Company Number: OMPQ-NO-0508L-1197

PATIENT
  Age: 56 Year
  Sex: Male

DRUGS (1)
  1. OMNIPAQUE 300 [Suspect]
     Indication: SUBARACHNOID HAEMORRHAGE
     Dosage: 20 ML, SINGLE DOSE, I.A.; SINGLE DOSE

REACTIONS (6)
  - ARTERIAL SPASM [None]
  - DIZZINESS [None]
  - ISCHAEMIA [None]
  - PARAESTHESIA [None]
  - RETROGRADE AMNESIA [None]
  - SOMNOLENCE [None]
